FAERS Safety Report 6874511-3 (Version None)
Quarter: 2010Q3

REPORT INFORMATION
  Report Type: 
  Country: None (occurrence: None)
  Receive Date: 20100723
  Receipt Date: 20100723
  Transmission Date: 20110219
  Serious: Yes (Hospitalization)
  Sender: FDA-Public Use
  Company Number: None

PATIENT
  Sex: Male
  Weight: 98 kg

DRUGS (5)
  1. CYTARABINE [Suspect]
  2. MERCAPTOPURINE [Suspect]
  3. METHOTREXATE [Suspect]
  4. ONCASPAR [Concomitant]
  5. VINCRISTINE SULFATE [Concomitant]

REACTIONS (9)
  - CHEST PAIN [None]
  - DECREASED APPETITE [None]
  - DYSPNOEA [None]
  - FATIGUE [None]
  - HEADACHE [None]
  - NAUSEA [None]
  - NEUTROPENIA [None]
  - PERIPHERAL SENSORIMOTOR NEUROPATHY [None]
  - VOMITING [None]
